FAERS Safety Report 23175833 (Version 1)
Quarter: 2023Q4

REPORT INFORMATION
  Report Type: Spontaneous
  Country: US (occurrence: US)
  Receive Date: 20231113
  Receipt Date: 20231113
  Transmission Date: 20240110
  Serious: No
  Sender: FDA-Public Use
  Company Number: US-IGSA-BIG0022294

PATIENT
  Age: 13 Year
  Sex: Male
  Weight: 48.5 kg

DRUGS (2)
  1. XEMBIFY [Suspect]
     Active Substance: HUMAN IMMUNOGLOBULIN G
     Indication: Immunodeficiency common variable
     Dosage: 5 GRAM, Q.WK.
     Route: 058
     Dates: start: 202211
  2. EMLA [Concomitant]
     Active Substance: LIDOCAINE\PRILOCAINE
     Indication: Premedication

REACTIONS (3)
  - Infusion site nodule [Not Recovered/Not Resolved]
  - Infusion site swelling [Not Recovered/Not Resolved]
  - Infusion site bruising [Recovered/Resolved]

NARRATIVE: CASE EVENT DATE: 20221101
